APPROVED DRUG PRODUCT: POTASSIUM CHLORIDE 30MEQ IN DEXTROSE 5% AND SODIUM CHLORIDE 0.225% IN PLASTIC CONTAINER
Active Ingredient: DEXTROSE; POTASSIUM CHLORIDE; SODIUM CHLORIDE
Strength: 5GM/100ML;224MG/100ML;225MG/100ML **Federal Register determination that product was not discontinued or withdrawn for safety or effectiveness reasons**
Dosage Form/Route: INJECTABLE;INJECTION
Application: N018365 | Product #003
Applicant: OTSUKA ICU MEDICAL LLC
Approved: Jul 5, 1983 | RLD: No | RS: No | Type: DISCN